FAERS Safety Report 23549854 (Version 1)
Quarter: 2024Q1

REPORT INFORMATION
  Report Type: Report from Study
  Country: CA (occurrence: CA)
  Receive Date: 20240221
  Receipt Date: 20240221
  Transmission Date: 20240410
  Serious: Yes (Hospitalization, Other)
  Sender: FDA-Public Use
  Company Number: CA-BAYER-2023A075340

PATIENT
  Sex: Male

DRUGS (1)
  1. EYLEA [Suspect]
     Active Substance: AFLIBERCEPT
     Indication: Age-related macular degeneration
     Dosage: 2 MG,OD, SOLUTION FOR INJECTION, 40 MG/ML
     Dates: start: 20230516

REACTIONS (6)
  - Blindness unilateral [Not Recovered/Not Resolved]
  - Endophthalmitis [Unknown]
  - Eye inflammation [Unknown]
  - Intraocular pressure increased [Unknown]
  - Retinal detachment [Unknown]
  - Eye pain [Unknown]

NARRATIVE: CASE EVENT DATE: 20230517
